FAERS Safety Report 11626961 (Version 3)
Quarter: 2015Q4

REPORT INFORMATION
  Report Type: Report from Study
  Country: CA (occurrence: CA)
  Receive Date: 20151013
  Receipt Date: 20151217
  Transmission Date: 20160304
  Serious: Yes (Other)
  Sender: FDA-Public Use
  Company Number: CA-ABBVIE-15P-028-1477175-00

PATIENT
  Sex: Male

DRUGS (3)
  1. KALETRA [Suspect]
     Active Substance: LOPINAVIR\RITONAVIR
     Indication: ANTIRETROVIRAL THERAPY
     Route: 048
  2. VITAMINES [Concomitant]
     Indication: PRODUCT USED FOR UNKNOWN INDICATION
     Route: 048
  3. SYNTHROIDE [Concomitant]
     Indication: THYROID DISORDER
     Route: 048

REACTIONS (6)
  - Thyroid cancer [Unknown]
  - Road traffic accident [Unknown]
  - Bone loss [Unknown]
  - Rib fracture [Recovered/Resolved]
  - Thyroid neoplasm [Unknown]
  - Thyroid neoplasm [Unknown]

NARRATIVE: CASE EVENT DATE: 2008
